FAERS Safety Report 9009629 (Version 3)
Quarter: 2013Q1

REPORT INFORMATION
  Report Type: Spontaneous
  Country: FR (occurrence: FR)
  Receive Date: 20130110
  Receipt Date: 20130124
  Transmission Date: 20140127
  Serious: Yes (Hospitalization, Other)
  Sender: FDA-Public Use
  Company Number: FR-PFIZER INC-2013009049

PATIENT
  Age: 60 Year
  Sex: Female

DRUGS (9)
  1. EUPANTOL [Suspect]
     Dosage: UNK
     Route: 048
     Dates: start: 201208, end: 20121008
  2. IBUPROFEN [Suspect]
     Dosage: UNK
     Route: 048
  3. VENTOLINE [Concomitant]
  4. SPASFON [Concomitant]
  5. DAFALGAN [Concomitant]
  6. CARDENSIEL [Concomitant]
  7. ACETYLSALICYLIC ACID [Concomitant]
  8. LOVENOX [Concomitant]
     Dosage: UNK
     Dates: start: 20120919
  9. TRAMADOL [Concomitant]
     Dosage: UNK
     Dates: start: 20120919

REACTIONS (1)
  - Pancytopenia [Recovered/Resolved]
